FAERS Safety Report 5811168-4 (Version None)
Quarter: 2008Q3

REPORT INFORMATION
  Report Type: 
  Country: None (occurrence: None)
  Receive Date: 20080711
  Receipt Date: 20080322
  Transmission Date: 20090109
  Serious: No
  Sender: FDA-Public Use
  Company Number: 2008BM000061

PATIENT
  Age: 5 Year
  Sex: Male
  Weight: 15.8759 kg

DRUGS (2)
  1. KUVAN [Suspect]
     Indication: PHENYLKETONURIA
     Dosage: 300 MG;QD;PO
     Route: 048
     Dates: start: 20080321, end: 20080322
  2. KUVAN [Suspect]
     Indication: PHENYLKETONURIA
     Dosage: 300 MG;QD;PO
     Route: 048
     Dates: start: 20080404

REACTIONS (2)
  - HEADACHE [None]
  - PYREXIA [None]
